FAERS Safety Report 5451116-2 (Version None)
Quarter: 2007Q3

REPORT INFORMATION
  Report Type: 
  Country: None (occurrence: None)
  Receive Date: 20070913
  Receipt Date: 20070905
  Transmission Date: 20080115
  Serious: Yes (Hospitalization)
  Sender: FDA-Public Use
  Company Number: GB-BAYER-200710958BNE

PATIENT
  Sex: Male

DRUGS (5)
  1. SORAFENIB [Suspect]
     Indication: RENAL CELL CARCINOMA STAGE UNSPECIFIED
     Dosage: TOTAL DAILY DOSE: 400 MG
     Route: 048
  2. SORAFENIB [Suspect]
     Dosage: TOTAL DAILY DOSE: 800 MG
     Route: 048
  3. SORAFENIB [Suspect]
     Dosage: TOTAL DAILY DOSE: 1200 MG
     Route: 048
  4. DEXAMETHASONE 0.5MG TAB [Concomitant]
  5. MORPHINE SULFATE [Concomitant]
     Dosage: TOTAL DAILY DOSE: 60 MG

REACTIONS (1)
  - RENAL FAILURE ACUTE [None]
